FAERS Safety Report 24217797 (Version 3)
Quarter: 2024Q4

REPORT INFORMATION
  Report Type: Spontaneous
  Country: US (occurrence: US)
  Receive Date: 20240816
  Receipt Date: 20241002
  Transmission Date: 20250114
  Serious: No
  Sender: PFIZER
  Company Number: US-PFIZER INC-202400233976

PATIENT
  Age: 6 Year
  Sex: Male
  Weight: 11.338 kg

DRUGS (3)
  1. GENOTROPIN [Suspect]
     Active Substance: SOMATROPIN
     Indication: Failure to thrive
     Dosage: 0.5MG INJECTION, IN LEGS, BUTT OR STOMACH
     Dates: start: 202203
  2. FAMOTIDINE [Concomitant]
     Active Substance: FAMOTIDINE
     Indication: Gastrooesophageal reflux disease
     Dosage: 1.3ML TWICE A DAY BY GT TUBE
  3. LANSOPRAZOLE [Concomitant]
     Active Substance: LANSOPRAZOLE
     Indication: Gastrooesophageal reflux disease
     Dosage: 15MG TWICE A DAY BY GT TUBE

REACTIONS (5)
  - Device use error [Unknown]
  - Expired device used [Unknown]
  - Device breakage [Unknown]
  - Device malfunction [Unknown]
  - Device leakage [Unknown]
